FAERS Safety Report 21895316 (Version 6)
Quarter: 2023Q2

REPORT INFORMATION
  Report Type: Report from Study
  Country: JP (occurrence: JP)
  Receive Date: 20230123
  Receipt Date: 20230411
  Transmission Date: 20230721
  Serious: Yes (Death)
  Sender: FDA-Public Use
  Company Number: JP-JNJFOC-20230136967

PATIENT
  Age: 77 Year
  Sex: Male

DRUGS (1)
  1. IMBRUVICA [Suspect]
     Active Substance: IBRUTINIB
     Indication: Chronic lymphocytic leukaemia
     Dosage: 140MG
     Route: 048
     Dates: start: 20190816, end: 20221209

REACTIONS (3)
  - Death [Fatal]
  - Haematemesis [Fatal]
  - Vomiting [Fatal]

NARRATIVE: CASE EVENT DATE: 20221209
